FAERS Safety Report 5897414-X (Version None)
Quarter: 2008Q3

REPORT INFORMATION
  Report Type: 
  Country: None (occurrence: None)
  Receive Date: 20080925
  Receipt Date: 20080915
  Transmission Date: 20090109
  Serious: Yes (Other)
  Sender: FDA-Public Use
  Company Number: US-JNJFOC-20080703957

PATIENT
  Sex: Female
  Weight: 45.36 kg

DRUGS (1)
  1. RENOVA 0.05% [Suspect]
     Indication: EPHELIDES
     Route: 065

REACTIONS (24)
  - ABDOMINAL PAIN UPPER [None]
  - BLOOD CHOLESTEROL ABNORMAL [None]
  - BONE DISORDER [None]
  - DERMATITIS ALLERGIC [None]
  - DIABETES MELLITUS [None]
  - DRY EYE [None]
  - EYE BURNS [None]
  - EYE SWELLING [None]
  - EYELID MARGIN CRUSTING [None]
  - FATIGUE [None]
  - GENITAL DISORDER FEMALE [None]
  - HAEMORRHAGE [None]
  - HAIR TEXTURE ABNORMAL [None]
  - JAW DISORDER [None]
  - KERATITIS [None]
  - LEUKOCYTOCLASTIC VASCULITIS [None]
  - NASAL SEPTUM DEVIATION [None]
  - NEPHRITIS [None]
  - RHINITIS [None]
  - SENSATION OF FOREIGN BODY [None]
  - SENSORY DISTURBANCE [None]
  - SILICOSIS [None]
  - SINUSITIS [None]
  - TOOTH DISORDER [None]
